FAERS Safety Report 19743998 (Version 1)
Quarter: 2021Q3

REPORT INFORMATION
  Report Type: Spontaneous
  Country: US (occurrence: US)
  Receive Date: 20210823
  Receipt Date: 20210823
  Transmission Date: 20211014
  Serious: No
  Sender: FDA-Public Use
  Company Number: None

PATIENT
  Age: 84 Year
  Sex: Male
  Weight: 63 kg

DRUGS (4)
  1. HYDROCHLOROTHIAZIDE. [Concomitant]
     Active Substance: HYDROCHLOROTHIAZIDE
  2. ELIQUIS [Concomitant]
     Active Substance: APIXABAN
  3. CARVEDILOL. [Concomitant]
     Active Substance: CARVEDILOL
  4. VYNDAMAX [Suspect]
     Active Substance: TAFAMIDIS
     Indication: CARDIAC DISORDER
     Dosage: ?          QUANTITY:30 CAPSULE(S);?
     Route: 048
     Dates: start: 20210726, end: 20210822

REACTIONS (8)
  - Joint swelling [None]
  - Balance disorder [None]
  - Asthenia [None]
  - Ageusia [None]
  - Petechiae [None]
  - Fatigue [None]
  - Gait disturbance [None]
  - Dizziness [None]

NARRATIVE: CASE EVENT DATE: 20210821
